FAERS Safety Report 7523619-8 (Version None)
Quarter: 2011Q2

REPORT INFORMATION
  Report Type: 
  Country: None (occurrence: None)
  Receive Date: 20110601
  Receipt Date: 20110601
  Transmission Date: 20111010
  Serious: Yes (Life-Threatening, Hospitalization)
  Sender: FDA-Public Use
  Company Number: None

PATIENT
  Age: 36 Year
  Sex: Male
  Weight: 176.8 kg

DRUGS (8)
  1. LISINOPRIL AND HYDROCHLOROTHIAZIDE [Suspect]
     Indication: HYPERTENSION
     Dosage: 20MG-25MG (1 TABLET) TWICE DAILY ORAL  LESS THAN 1 MONTH
     Route: 048
  2. TRAZODONE HCL [Concomitant]
  3. CHLORHEXIDINE GLUCONATE [Concomitant]
  4. TRAMADOL HCL [Concomitant]
  5. SULFAMETHOXAZOLE AND TRIMETHOPRIM [Concomitant]
  6. LITHIUM CARBONATE [Concomitant]
  7. HALOPERIDOL [Concomitant]
  8. LINEZOLID [Concomitant]

REACTIONS (8)
  - LIP SWELLING [None]
  - PHARYNGEAL OEDEMA [None]
  - PARAESTHESIA [None]
  - WRONG DRUG ADMINISTERED [None]
  - PHARYNGEAL HYPOAESTHESIA [None]
  - ANGIOEDEMA [None]
  - SELF-MEDICATION [None]
  - HYPERTENSION [None]
